FAERS Safety Report 5834071-2 (Version None)
Quarter: 2008Q3

REPORT INFORMATION
  Report Type: 
  Country: None (occurrence: None)
  Receive Date: 20080801
  Receipt Date: 20080801
  Transmission Date: 20090109
  Serious: No
  Sender: FDA-Public Use
  Company Number: None

PATIENT
  Age: 85 Year
  Sex: Male
  Weight: 45.3 kg

DRUGS (1)
  1. PHENYTOIN [Suspect]
     Indication: CONVULSION
     Dosage: 400 MG HS PO
     Route: 048
     Dates: start: 20080612, end: 20080714

REACTIONS (3)
  - ANTICONVULSANT DRUG LEVEL INCREASED [None]
  - LEUKOCYTOSIS [None]
  - MENTAL STATUS CHANGES [None]
